FAERS Safety Report 6003840-0 (Version None)
Quarter: 2008Q4

REPORT INFORMATION
  Report Type: 
  Country: None (occurrence: None)
  Receive Date: 20081216
  Receipt Date: 20081211
  Transmission Date: 20090506
  Serious: Yes (Death)
  Sender: FDA-Public Use
  Company Number: US-ROCHE-600587

PATIENT
  Sex: Female

DRUGS (1)
  1. XELODA [Suspect]
     Indication: COLON CANCER STAGE IV
     Route: 065
     Dates: end: 20081004

REACTIONS (3)
  - DEATH [None]
  - NAUSEA [None]
  - VOMITING [None]
